FAERS Safety Report 6738002-2 (Version None)
Quarter: 2010Q2

REPORT INFORMATION
  Report Type: 
  Country: None (occurrence: None)
  Receive Date: 20100524
  Receipt Date: 20100517
  Transmission Date: 20101027
  Serious: Yes (Other)
  Sender: FDA-Public Use
  Company Number: CH-ROCHE-703332

PATIENT
  Age: 50 Year

DRUGS (1)
  1. BEVACIZUMAB [Suspect]
     Indication: GLIOBLASTOMA MULTIFORME
     Route: 042
     Dates: start: 20100115, end: 20100128

REACTIONS (1)
  - MALIGNANT NEOPLASM PROGRESSION [None]
